FAERS Safety Report 8853402 (Version 7)
Quarter: 2013Q4

REPORT INFORMATION
  Report Type: Spontaneous
  Country: US (occurrence: US)
  Receive Date: 20121022
  Receipt Date: 20131001
  Transmission Date: 20140711
  Serious: Yes (Hospitalization, Disabling, Other)
  Sender: FDA-Public Use
  Company Number: US-009507513-1210USA007074

PATIENT
  Sex: Female
  Weight: 81.63 kg

DRUGS (6)
  1. FOSAMAX [Suspect]
     Indication: OSTEOPOROSIS
     Dosage: 70 MG, QW
     Route: 048
     Dates: start: 2003, end: 2009
  2. FOSAMAX [Suspect]
     Dosage: 5 MG, QD
     Route: 048
  3. ZYRTEC [Concomitant]
     Indication: HYPERSENSITIVITY
     Dosage: 10 MG, QD
     Route: 048
  4. INFLUENZA VIRUS VACCINE (UNSPECIFIED) [Concomitant]
     Dosage: UNK
     Dates: start: 20071031, end: 20071031
  5. ATENOLOL [Concomitant]
     Indication: HYPERTENSION
     Dosage: 50 MG, UNK
  6. LOSARTAN POTASSIUM [Concomitant]
     Indication: HYPERTENSION
     Dosage: 100 MG, UNK

REACTIONS (53)
  - Femur fracture [Not Recovered/Not Resolved]
  - Intramedullary rod insertion [Unknown]
  - Acute myocardial infarction [Unknown]
  - Surgery [Unknown]
  - Cerebrovascular accident [Unknown]
  - Low turnover osteopathy [Not Recovered/Not Resolved]
  - Coronary artery disease [Unknown]
  - Neuropathy peripheral [Unknown]
  - Atrial fibrillation [Not Recovered/Not Resolved]
  - Insomnia [Not Recovered/Not Resolved]
  - Fall [Unknown]
  - Fall [Unknown]
  - Balance disorder [Unknown]
  - Urinary tract infection [Unknown]
  - Haemoglobin decreased [Unknown]
  - Stress urinary incontinence [Unknown]
  - Cystocele [Unknown]
  - Rectocele [Unknown]
  - Carpal tunnel decompression [Unknown]
  - Restless legs syndrome [Unknown]
  - Irritable bowel syndrome [Unknown]
  - Paraesthesia [Unknown]
  - Pain [Unknown]
  - Non-cardiac chest pain [Unknown]
  - Osteoarthritis [Unknown]
  - Hypertonic bladder [Unknown]
  - Peripheral nerve neurostimulation [Unknown]
  - Foot fracture [Unknown]
  - Medical device change [Unknown]
  - Device related infection [Unknown]
  - Medical device removal [Unknown]
  - Intervertebral disc disorder [Unknown]
  - Blister [Unknown]
  - Foot fracture [Unknown]
  - Angina pectoris [Not Recovered/Not Resolved]
  - Nocturnal dyspnoea [Unknown]
  - Gait disturbance [Unknown]
  - Type 2 diabetes mellitus [Unknown]
  - Mitral valve incompetence [Unknown]
  - Aortic valve incompetence [Unknown]
  - Pulmonary hypertension [Unknown]
  - Angina unstable [Unknown]
  - Chest pain [Unknown]
  - Back injury [Unknown]
  - Calcium deficiency [Unknown]
  - Vitamin D deficiency [Unknown]
  - Oedema peripheral [Not Recovered/Not Resolved]
  - Drug ineffective [Unknown]
  - Pain in extremity [Unknown]
  - Arthralgia [Unknown]
  - Oedema peripheral [Unknown]
  - Headache [Recovered/Resolved]
  - Pain in extremity [Unknown]
